FAERS Safety Report 10273205 (Version 1)
Quarter: 2014Q3

REPORT INFORMATION
  Report Type: Spontaneous
  Country: US (occurrence: US)
  Receive Date: 20140702
  Receipt Date: 20140702
  Transmission Date: 20150326
  Serious: No
  Sender: FDA-Public Use
  Company Number: US-009507513-1406USA011732

PATIENT
  Sex: Female

DRUGS (1)
  1. FOLLISTIM [Suspect]
     Active Substance: FOLLITROPIN
     Dosage: 50 UNITS, FREQUENCY UNSPECIFIED
     Dates: start: 20140621

REACTIONS (3)
  - Product quality issue [Unknown]
  - Incorrect dosage administered [Unknown]
  - No adverse event [Unknown]
